FAERS Safety Report 4367848-3 (Version None)
Quarter: 2004Q2

REPORT INFORMATION
  Report Type: 
  Country: None (occurrence: None)
  Receive Date: 20040601
  Receipt Date: 20040601
  Transmission Date: 20050107
  Serious: Yes (Hospitalization)
  Sender: FDA-Public Use
  Company Number: None

PATIENT
  Age: 22 Year
  Sex: Male

DRUGS (1)
  1. GEODON [Suspect]
     Indication: PSYCHOTIC DISORDER
     Dosage: 80 MG PO BID
     Route: 048
     Dates: start: 20031217, end: 20031219

REACTIONS (3)
  - DYSPNOEA [None]
  - DYSTONIA [None]
  - SWOLLEN TONGUE [None]
